FAERS Safety Report 7403952-0 (Version None)
Quarter: 2011Q2

REPORT INFORMATION
  Report Type: 
  Country: None (occurrence: None)
  Receive Date: 20110408
  Receipt Date: 20110330
  Transmission Date: 20111010
  Serious: Yes (Congenital Anomaly)
  Sender: FDA-Public Use
  Company Number: DE-ASTRAZENECA-2011SE18165

PATIENT

DRUGS (1)
  1. CANDESARTAN [Suspect]
     Route: 064

REACTIONS (1)
  - PATENT DUCTUS ARTERIOSUS [None]
